FAERS Safety Report 12232994 (Version 1)
Quarter: 2016Q2

REPORT INFORMATION
  Report Type: Spontaneous
  Country: IR (occurrence: IR)
  Receive Date: 20160403
  Receipt Date: 20160403
  Transmission Date: 20160815
  Serious: Yes (Other)
  Sender: FDA-Public Use
  Company Number: IR-IPCA LABORATORIES LIMITED-IPC201408-000438

PATIENT
  Age: 21 Year
  Sex: Male

DRUGS (2)
  1. TRAMADOL. [Suspect]
     Active Substance: TRAMADOL
  2. METHADONE [Suspect]
     Active Substance: METHADONE HYDROCHLORIDE

REACTIONS (4)
  - Joint dislocation [Unknown]
  - Toxicity to various agents [Unknown]
  - Generalised tonic-clonic seizure [Unknown]
  - Overdose [Unknown]
